FAERS Safety Report 9227578 (Version 1)
Quarter: 2013Q2

REPORT INFORMATION
  Report Type: Spontaneous
  Country: US (occurrence: None)
  Receive Date: 20130411
  Receipt Date: 20130411
  Transmission Date: 20140414
  Serious: Yes (Hospitalization)
  Sender: FDA-Public Use
  Company Number: None

PATIENT
  Age: 49 Year
  Sex: Female
  Weight: 105 kg

DRUGS (1)
  1. IBUPROFEN [Suspect]
     Indication: FALL
     Dosage: RECENT
     Route: 048

REACTIONS (1)
  - Upper gastrointestinal haemorrhage [None]
